FAERS Safety Report 24949894 (Version 2)
Quarter: 2025Q1

REPORT INFORMATION
  Report Type: Spontaneous
  Country: US (occurrence: US)
  Receive Date: 20250210
  Receipt Date: 20250317
  Transmission Date: 20250409
  Serious: No
  Sender: MYLAN
  Company Number: US-MYLANLABS-2025M1009555

PATIENT
  Sex: Male

DRUGS (3)
  1. LEVOTHYROXINE SODIUM [Suspect]
     Active Substance: LEVOTHYROXINE SODIUM
     Indication: Product used for unknown indication
     Dosage: 125 MICROGRAM, QD (TAKE ONE TABLET BY MOUTH EVERY DAY)
  2. SYNTHROID [Concomitant]
     Active Substance: LEVOTHYROXINE SODIUM
  3. SYNTHROID [Concomitant]
     Active Substance: LEVOTHYROXINE SODIUM

REACTIONS (8)
  - Brain fog [Recovering/Resolving]
  - Dizziness [Recovering/Resolving]
  - Diplopia [Unknown]
  - Malaise [Recovering/Resolving]
  - Impaired driving ability [Unknown]
  - Thyroxine free increased [Unknown]
  - Feeling abnormal [Unknown]
  - Product quality issue [Unknown]

NARRATIVE: CASE EVENT DATE: 20240901
